FAERS Safety Report 9115069 (Version 1)
Quarter: 2013Q1

REPORT INFORMATION
  Report Type: Report from Study
  Country: FR (occurrence: FR)
  Receive Date: 20130208
  Receipt Date: 20130208
  Transmission Date: 20140127
  Serious: Yes (Hospitalization)
  Sender: FDA-Public Use
  Company Number: FR-PFIZER INC-2013043392

PATIENT
  Age: 77 Year
  Sex: Male

DRUGS (15)
  1. BLINDED NO SUBJECT DRUG [Suspect]
     Indication: HEPATIC CANCER
     Dosage: 37.5 MG, DAILY
     Dates: start: 20110712
  2. BLINDED PLACEBO [Suspect]
     Indication: HEPATIC CANCER
     Dosage: 37.5 MG, DAILY
     Dates: start: 20110712
  3. SUNITINIB MALATE [Suspect]
     Indication: HEPATIC CANCER
     Dosage: 37.5 MG, DAILY
     Dates: start: 20110712
  4. DOXORUBICIN HCL [Suspect]
     Indication: HEPATIC CANCER
     Dosage: 150 MG, UNK
     Dates: start: 20110721
  5. AUGMENTIN [Concomitant]
     Indication: ANTIBIOTIC THERAPY
     Dosage: 1 G
     Dates: start: 20110721, end: 20110724
  6. PERFALGAN [Concomitant]
     Indication: PYREXIA
     Dosage: 1 G
     Dates: start: 20110722, end: 20110726
  7. PERFALGAN [Concomitant]
     Indication: PAIN
  8. DOLIPRANE [Concomitant]
     Indication: PYREXIA
     Dosage: 1 G
     Dates: start: 20110722, end: 20110726
  9. DOLIPRANE [Concomitant]
     Indication: PAIN
  10. TOPALGIC [Concomitant]
     Indication: PYREXIA
     Dosage: 100 MG
     Dates: start: 20110721, end: 20110729
  11. TOPALGIC [Concomitant]
     Indication: PAIN
  12. PULMICORT [Concomitant]
     Indication: ASTHMA
  13. AMLOR [Concomitant]
     Indication: HYPERTENSION
     Dosage: 5 MG
  14. VASTAREL [Concomitant]
     Indication: HYPERTENSION
     Dosage: 20 MG
  15. METFORMIN [Concomitant]
     Indication: DIABETES MELLITUS
     Dosage: 100 MG

REACTIONS (1)
  - Cholecystitis [Recovered/Resolved]
